FAERS Safety Report 5368411-8 (Version None)
Quarter: 2007Q2

REPORT INFORMATION
  Report Type: 
  Country: None (occurrence: None)
  Receive Date: 20070622
  Receipt Date: 20070622
  Transmission Date: 20071010
  Serious: No
  Sender: FDA-Public Use
  Company Number: None

PATIENT

DRUGS (1)
  1. CELEXA [Suspect]
     Dosage: 40 MG QD

REACTIONS (1)
  - HYPERSENSITIVITY [None]
